FAERS Safety Report 7285403-2 (Version None)
Quarter: 2011Q1

REPORT INFORMATION
  Report Type: 
  Country: None (occurrence: None)
  Receive Date: 20110210
  Receipt Date: 20110207
  Transmission Date: 20110831
  Serious: Yes (Other)
  Sender: FDA-Public Use
  Company Number: US-SHIRE-SPV1-2011-00208

PATIENT
  Age: 8 Year
  Sex: Female
  Weight: 24.943 kg

DRUGS (2)
  1. INTUNIV [Suspect]
     Dosage: 1 MG, 1X/DAY:QD
     Route: 048
     Dates: start: 20101201, end: 20110101
  2. INTUNIV [Suspect]
     Indication: ATTENTION DEFICIT/HYPERACTIVITY DISORDER
     Dosage: 2 MG, 1X/DAY:QD
     Route: 048
     Dates: start: 20110101, end: 20110203

REACTIONS (1)
  - SYNCOPE [None]
